FAERS Safety Report 7343044-2 (Version None)
Quarter: 2011Q1

REPORT INFORMATION
  Report Type: 
  Country: None (occurrence: None)
  Receive Date: 20110310
  Receipt Date: 20110228
  Transmission Date: 20110831
  Serious: Yes (Hospitalization, Other)
  Sender: FDA-Public Use
  Company Number: CA-JNJFOC-20110300767

PATIENT
  Age: 4 Year
  Sex: Female

DRUGS (2)
  1. BENADRYL [Suspect]
     Route: 048
  2. BENADRYL [Suspect]
     Indication: MULTIPLE ALLERGIES
     Dosage: ONE TABLET AS NEEDED
     Route: 048

REACTIONS (3)
  - APPARENT LIFE THREATENING EVENT [None]
  - WRONG DRUG ADMINISTERED [None]
  - RESPIRATORY ARREST [None]
